FAERS Safety Report 9804358 (Version 1)
Quarter: 2014Q1

REPORT INFORMATION
  Report Type: Spontaneous
  Country: US (occurrence: None)
  Receive Date: 20140106
  Receipt Date: 20140106
  Transmission Date: 20141002
  Serious: No
  Sender: FDA-Public Use
  Company Number: 2013AP010815

PATIENT
  Age: 68 Year
  Sex: Female

DRUGS (3)
  1. PAROXETINE HYDROCHLORIDE [Suspect]
     Indication: ANXIETY
     Route: 048
     Dates: start: 20121221, end: 20130107
  2. GEMCITABINE [Suspect]
     Indication: ADENOCARCINOMA PANCREAS
  3. LORAZEPAM [Concomitant]

REACTIONS (2)
  - Tremor [None]
  - Bone marrow failure [None]
